FAERS Safety Report 4774726-4 (Version None)
Quarter: 2005Q3

REPORT INFORMATION
  Report Type: 
  Country: None (occurrence: None)
  Receive Date: 20050921
  Receipt Date: 20050915
  Transmission Date: 20060218
  Serious: Yes (Other)
  Sender: FDA-Public Use
  Company Number: CA-GLAXOSMITHKLINE-A0574929A

PATIENT
  Age: 48 Year
  Sex: Female

DRUGS (4)
  1. BUPROPION [Suspect]
     Indication: DRUG USE FOR UNKNOWN INDICATION
     Dosage: 150MG TWICE PER DAY
     Route: 048
  2. ATROVENT [Concomitant]
     Route: 065
  3. ALBUTEROL SULFATE HFA [Concomitant]
     Route: 065
  4. SYMBICORT [Concomitant]
     Route: 065

REACTIONS (5)
  - DEPRESSION [None]
  - HEADACHE [None]
  - NAUSEA [None]
  - PERSONALITY DISORDER [None]
  - VOMITING [None]
